FAERS Safety Report 23969218 (Version 1)
Quarter: 2024Q2

REPORT INFORMATION
  Report Type: Spontaneous
  Country: US (occurrence: US)
  Receive Date: 20240612
  Receipt Date: 20240612
  Transmission Date: 20240716
  Serious: No
  Sender: FDA-Public Use
  Company Number: US-AMGEN-HZN-2024-005654

PATIENT
  Age: 40 Year
  Sex: Female

DRUGS (1)
  1. TEPEZZA [Suspect]
     Active Substance: TEPROTUMUMAB-TRBW
     Indication: Product used for unknown indication
     Dosage: UNKNOWN, FIRST DOSE
     Route: 065

REACTIONS (1)
  - Amenorrhoea [Not Recovered/Not Resolved]

NARRATIVE: CASE EVENT DATE: 20240301
